FAERS Safety Report 5739150-6 (Version None)
Quarter: 2008Q2

REPORT INFORMATION
  Report Type: 
  Country: None (occurrence: None)
  Receive Date: 20080515
  Receipt Date: 20080507
  Transmission Date: 20081010
  Serious: Yes (Other)
  Sender: FDA-Public Use
  Company Number: B0376875A

PATIENT
  Age: 29 Year
  Sex: Female

DRUGS (5)
  1. PAROXETINE HCL [Suspect]
     Dates: start: 20000104
  2. DEPO-PROVERA [Concomitant]
     Indication: CONTRACEPTION
  3. AMPHETAMINES [Concomitant]
     Dates: end: 20020501
  4. MELLARIL [Concomitant]
     Indication: AGITATION
     Dates: start: 20000301
  5. DIAZEPAM [Concomitant]
     Indication: MUSCLE STRAIN

REACTIONS (30)
  - ABNORMAL DREAMS [None]
  - AGGRESSION [None]
  - AGITATION [None]
  - ANXIETY [None]
  - CONFUSIONAL STATE [None]
  - DEPRESSION [None]
  - DEREALISATION [None]
  - DIARRHOEA [None]
  - DIZZINESS [None]
  - DRUG WITHDRAWAL SYNDROME [None]
  - FATIGUE [None]
  - FEELING ABNORMAL [None]
  - FEELING COLD [None]
  - FEELING HOT [None]
  - FLATULENCE [None]
  - HALLUCINATION [None]
  - HEADACHE [None]
  - HYPERHIDROSIS [None]
  - ILL-DEFINED DISORDER [None]
  - INFLUENZA LIKE ILLNESS [None]
  - INSOMNIA [None]
  - IRRITABILITY [None]
  - MOOD SWINGS [None]
  - MUSCLE SPASMS [None]
  - NAUSEA [None]
  - OVERDOSE [None]
  - PARAESTHESIA [None]
  - SOMNOLENCE [None]
  - SUICIDAL BEHAVIOUR [None]
  - TREMOR [None]
